FAERS Safety Report 9165364 (Version 1)
Quarter: 2013Q1

REPORT INFORMATION
  Report Type: Spontaneous
  Country: US (occurrence: None)
  Receive Date: 20130314
  Receipt Date: 20130314
  Transmission Date: 20140127
  Serious: Yes (Hospitalization)
  Sender: FDA-Public Use
  Company Number: None

PATIENT
  Age: 76 Year
  Sex: Female
  Weight: 51.9 kg

DRUGS (2)
  1. EVEROLIMUS [Suspect]
     Indication: LYMPHOMA
     Route: 048
     Dates: start: 20130211, end: 20130304
  2. BORTEZOMIB [Suspect]
     Indication: LYMPHOMA
     Dosage: 2 MG DAY 1, 4, 8, 11 SQ
     Dates: start: 20130211

REACTIONS (1)
  - Febrile neutropenia [None]
